FAERS Safety Report 4831759-7 (Version None)
Quarter: 2005Q4

REPORT INFORMATION
  Report Type: 
  Country: None (occurrence: None)
  Receive Date: 20051118
  Receipt Date: 20050310
  Transmission Date: 20060501
  Serious: Yes (Hospitalization, Other)
  Sender: FDA-Public Use
  Company Number: US-MERCK-0503USA02090

PATIENT
  Age: 50 Year
  Sex: Female
  Weight: 116 kg

DRUGS (18)
  1. AMANTADINE HCL [Concomitant]
     Route: 065
  2. ASPIRIN [Concomitant]
     Route: 065
     Dates: start: 20010101, end: 20050101
  3. ZOCOR [Concomitant]
     Route: 065
     Dates: start: 20000101
  4. VIOXX [Suspect]
     Indication: ARTHRALGIA
     Route: 048
     Dates: start: 20000101, end: 20010101
  5. VIOXX [Suspect]
     Route: 048
     Dates: start: 20000101
  6. ZYPREXA [Concomitant]
     Route: 065
  7. LITHONATE [Concomitant]
     Route: 065
     Dates: start: 19990101, end: 20010101
  8. COGENTIN [Concomitant]
     Route: 065
  9. ACCUPRIL [Concomitant]
     Route: 065
  10. IBUPROFEN [Concomitant]
     Route: 065
  11. TYLENOL (CAPLET) [Concomitant]
     Route: 065
  12. HALOPERIDOL DECANOATE [Concomitant]
     Route: 065
     Dates: start: 19990101, end: 20010101
  13. ISOSORBIDE MONONITRATE [Concomitant]
     Route: 065
     Dates: start: 20000101, end: 20010101
  14. ISOSORBIDE MONONITRATE [Concomitant]
     Route: 065
     Dates: start: 20000101, end: 20010101
  15. MEDROXYPROGESTERONE ACETATE [Concomitant]
     Route: 065
     Dates: start: 20000101, end: 20010101
  16. DEPAKOTE [Concomitant]
     Route: 065
  17. FERROUS SULFATE [Concomitant]
     Route: 065
  18. HYDROCHLOROTHIAZIDE [Concomitant]
     Route: 065
     Dates: start: 19990101

REACTIONS (22)
  - ANGINA UNSTABLE [None]
  - ASTHMA [None]
  - CARDIAC MURMUR [None]
  - CARDIOVASCULAR DISORDER [None]
  - CONFUSIONAL STATE [None]
  - CONVULSION [None]
  - CORONARY ARTERY DISEASE [None]
  - DIABETES MELLITUS [None]
  - DYSPNOEA [None]
  - EMOTIONAL DISTRESS [None]
  - EXOPHTHALMOS [None]
  - GRAND MAL CONVULSION [None]
  - HYPERCHOLESTEROLAEMIA [None]
  - HYPERTENSION [None]
  - INCONTINENCE [None]
  - LOSS OF CONSCIOUSNESS [None]
  - MITRAL VALVE INCOMPETENCE [None]
  - MYOCARDIAL INFARCTION [None]
  - OSTEOARTHRITIS [None]
  - RENAL DISORDER [None]
  - SYNCOPE [None]
  - URINARY INCONTINENCE [None]
